FAERS Safety Report 13183228 (Version 1)
Quarter: 2017Q1

REPORT INFORMATION
  Report Type: Spontaneous
  Country: US (occurrence: US)
  Receive Date: 20170203
  Receipt Date: 20170203
  Transmission Date: 20170428
  Serious: No
  Sender: FDA-Public Use
  Company Number: US-BAYER-2017-019127

PATIENT

DRUGS (8)
  1. PREGABALIN. [Concomitant]
     Active Substance: PREGABALIN
  2. ALBUTEROL. [Concomitant]
     Active Substance: ALBUTEROL
  3. NEURONTIN [Concomitant]
     Active Substance: GABAPENTIN
  4. LYRICA [Concomitant]
     Active Substance: PREGABALIN
     Dosage: 100 MG, BID
     Route: 048
  5. METFORMIN [Concomitant]
     Active Substance: METFORMIN HYDROCHLORIDE
  6. QVAR [Concomitant]
     Active Substance: BECLOMETHASONE DIPROPIONATE
  7. ALEVE [Suspect]
     Active Substance: NAPROXEN SODIUM
     Dosage: UNK
  8. ATORVASTATIN [Concomitant]
     Active Substance: ATORVASTATIN

REACTIONS (1)
  - Drug hypersensitivity [None]
